FAERS Safety Report 4694736-5 (Version None)
Quarter: 2005Q2

REPORT INFORMATION
  Report Type: 
  Country: None (occurrence: None)
  Receive Date: 20050617
  Receipt Date: 20050603
  Transmission Date: 20051028
  Serious: Yes (Hospitalization, Other)
  Sender: FDA-Public Use
  Company Number: 2005BI010885

PATIENT
  Sex: Female

DRUGS (2)
  1. AVONEX [Suspect]
     Indication: MULTIPLE SCLEROSIS
     Dosage: 30 UG; QW; IM
     Route: 030
     Dates: start: 20040805
  2. NOVANTRONE [Concomitant]

REACTIONS (4)
  - APNOEA [None]
  - CARDIAC ARREST [None]
  - CONVULSION [None]
  - ROAD TRAFFIC ACCIDENT [None]
